FAERS Safety Report 16094689 (Version 2)
Quarter: 2025Q3

REPORT INFORMATION
  Report Type: Spontaneous
  Country: EU (occurrence: EU)
  Receive Date: 20190320
  Receipt Date: 20250802
  Transmission Date: 20251021
  Serious: Yes (Hospitalization, Other)
  Sender: AUROBINDO
  Company Number: EU-AUROBINDO-AUR-APL-2019-013995

PATIENT
  Age: 55 Year
  Sex: Female

DRUGS (1)
  1. CIPROFLOXACIN [Suspect]
     Active Substance: CIPROFLOXACIN
     Indication: Gastrointestinal infection
     Route: 065

REACTIONS (8)
  - Urinary retention [Unknown]
  - Paraparesis [Unknown]
  - Paraesthesia [Unknown]
  - Extensor plantar response [Unknown]
  - Hereditary haemorrhagic telangiectasia [Unknown]
  - Motor dysfunction [Unknown]
  - Acute respiratory failure [Unknown]
  - Autonomic nervous system imbalance [Unknown]
